FAERS Safety Report 5697747-6 (Version None)
Quarter: 2008Q2

REPORT INFORMATION
  Report Type: 
  Country: None (occurrence: None)
  Receive Date: 20080408
  Receipt Date: 20080402
  Transmission Date: 20081010
  Serious: Yes (Life-Threatening, Hospitalization)
  Sender: FDA-Public Use
  Company Number: CA-AVENTIS-200812946GDDC

PATIENT
  Age: 44 Year
  Sex: Male

DRUGS (5)
  1. LANTUS [Suspect]
     Route: 058
  2. ASPIRIN [Concomitant]
     Route: 048
  3. ATIVAN [Concomitant]
     Route: 048
  4. QUESTRAN [Concomitant]
     Route: 048
  5. PANTOLOC                           /01263201/ [Concomitant]
     Indication: HERNIA
     Route: 048

REACTIONS (3)
  - FEELING HOT [None]
  - INJECTION SITE PAIN [None]
  - LOSS OF CONSCIOUSNESS [None]
